FAERS Safety Report 5407233-6 (Version None)
Quarter: 2007Q3

REPORT INFORMATION
  Report Type: 
  Country: None (occurrence: None)
  Receive Date: 20070807
  Receipt Date: 20070802
  Transmission Date: 20080115
  Serious: Yes (Other)
  Sender: FDA-Public Use
  Company Number: A0667892A

PATIENT
  Age: 50 Year
  Sex: Female

DRUGS (5)
  1. ADVAIR DISKUS 100/50 [Suspect]
     Indication: ASTHMA
     Dosage: 1PUFF TWICE PER DAY
     Route: 055
     Dates: start: 20010101
  2. ALBUTEROL [Concomitant]
  3. DIOVAN HCT [Concomitant]
  4. AMLODIPINE [Concomitant]
  5. CRESTOR [Concomitant]

REACTIONS (10)
  - ASTHMA [None]
  - CATARACT [None]
  - DRUG INEFFECTIVE [None]
  - DYSPHONIA [None]
  - HAIR GROWTH ABNORMAL [None]
  - JOINT SWELLING [None]
  - MUSCLE SPASMS [None]
  - MYALGIA [None]
  - OEDEMA PERIPHERAL [None]
  - VISION BLURRED [None]
